FAERS Safety Report 21164124 (Version 2)
Quarter: 2022Q3

REPORT INFORMATION
  Report Type: Spontaneous
  Country: FR (occurrence: FR)
  Receive Date: 20220803
  Receipt Date: 20220906
  Transmission Date: 20221026
  Serious: Yes (Hospitalization)
  Sender: FDA-Public Use
  Company Number: None

PATIENT
  Age: 80 Year
  Sex: Male

DRUGS (2)
  1. KETOPROFEN [Suspect]
     Active Substance: KETOPROFEN
     Indication: Rotator cuff syndrome
     Dosage: KETOPROFENE ,UNIT DOSE : 100 MG , FREQUENCY TIME : 1 DAY , DURATION : 16 DAYS
     Route: 065
     Dates: start: 20220609, end: 20220625
  2. BACTRIM [Suspect]
     Active Substance: SULFAMETHOXAZOLE\TRIMETHOPRIM
     Indication: Rotator cuff syndrome
     Dosage: 2 DOSAGE FORMS DAILY; 1-0-1-0
     Route: 065
     Dates: start: 20220613, end: 20220625

REACTIONS (1)
  - Vascular purpura [Recovered/Resolved]

NARRATIVE: CASE EVENT DATE: 20220624
